FAERS Safety Report 23169614 (Version 1)
Quarter: 2023Q4

REPORT INFORMATION
  Report Type: Spontaneous
  Country: US (occurrence: US)
  Receive Date: 20231110
  Receipt Date: 20231110
  Transmission Date: 20240109
  Serious: No
  Sender: FDA-Public Use
  Company Number: US-TEVA-2023-US-2940570

PATIENT
  Age: 67 Year
  Sex: Female

DRUGS (1)
  1. PROVIGIL [Suspect]
     Active Substance: MODAFINIL
     Indication: Fatigue
     Route: 065

REACTIONS (3)
  - Headache [Unknown]
  - Loss of personal independence in daily activities [Unknown]
  - Fatigue [Unknown]
